FAERS Safety Report 7550979-4 (Version None)
Quarter: 2011Q2

REPORT INFORMATION
  Report Type: 
  Country: None (occurrence: None)
  Receive Date: 20110616
  Receipt Date: 20110328
  Transmission Date: 20111010
  Serious: No
  Sender: FDA-Public Use
  Company Number: US-MYLANLABS-2011S1006525

PATIENT
  Sex: Female

DRUGS (1)
  1. SOTALOL HYDROCHLORIDE [Suspect]

REACTIONS (2)
  - DRUG EFFECT DECREASED [None]
  - ALOPECIA [None]
